FAERS Safety Report 10018992 (Version 1)
Quarter: 2014Q1

REPORT INFORMATION
  Report Type: Spontaneous
  Country: NL (occurrence: NL)
  Receive Date: 20140318
  Receipt Date: 20140318
  Transmission Date: 20141002
  Serious: Yes (Hospitalization)
  Sender: FDA-Public Use
  Company Number: NL-GLAXOSMITHKLINE-B0977353A

PATIENT
  Age: 66 Year
  Sex: Male

DRUGS (2)
  1. VALACICLOVIR [Suspect]
     Indication: HERPES OPHTHALMIC
     Dosage: 500MG TWICE PER DAY
     Route: 048
     Dates: start: 20131213, end: 20140108
  2. AZATHIOPRINE [Concomitant]
     Dosage: 50MG TWICE PER DAY

REACTIONS (2)
  - Pruritus [Recovered/Resolved]
  - Feeling cold [Recovered/Resolved]
